FAERS Safety Report 8891128 (Version 2)
Quarter: 2014Q2

REPORT INFORMATION
  Report Type: Spontaneous
  Country: ES (occurrence: ES)
  Receive Date: 20121107
  Receipt Date: 20131120
  Transmission Date: 20141212
  Serious: Yes (Other)
  Sender: FDA-Public Use
  Company Number: ES-TEVA-366912ISR

PATIENT
  Age: 72 Year
  Sex: Male

DRUGS (2)
  1. CARBOPLATINO TEVA 10 MG/ML CONCENTRADO PARA SOLUCION PARA PERFUSION [Suspect]
     Route: 042
     Dates: start: 20120627, end: 20120627
  2. ETOPOSIDO TEVA 10MG/ML CONCENTRADO PARA SOLUCION PARA PERFUSION [Suspect]
     Route: 042
     Dates: start: 20120627, end: 20120629

REACTIONS (4)
  - Rectal haemorrhage [Not Recovered/Not Resolved]
  - Anaemia [Recovered/Resolved]
  - Thrombocytopenia [Not Recovered/Not Resolved]
  - Febrile neutropenia [Recovered/Resolved]
